FAERS Safety Report 13724483 (Version 1)
Quarter: 2017Q3

REPORT INFORMATION
  Report Type: Spontaneous
  Country: US (occurrence: US)
  Receive Date: 20170706
  Receipt Date: 20170706
  Transmission Date: 20171127
  Serious: No
  Sender: FDA-Public Use
  Company Number: US-JUBILANT CADISTA PHARMACEUTICALS-2017JUB00035

PATIENT
  Sex: Female

DRUGS (7)
  1. TYLENOL [Suspect]
     Active Substance: ACETAMINOPHEN
     Dosage: 1 TABLETS, TWICE
     Route: 048
     Dates: start: 20170124, end: 20170124
  2. PEPTO-BISMOL [Suspect]
     Active Substance: BISMUTH SUBSALICYLATE
     Dosage: UNK
     Dates: start: 20170124, end: 20170124
  3. CITALOPRAM [Concomitant]
     Active Substance: CITALOPRAM HYDROBROMIDE
  4. LISINOPRIL. [Concomitant]
     Active Substance: LISINOPRIL
  5. MECLIZINE HYDROCHLORIDE. [Suspect]
     Active Substance: MECLIZINE HYDROCHLORIDE
     Indication: PAIN IN EXTREMITY
  6. MECLIZINE HYDROCHLORIDE. [Suspect]
     Active Substance: MECLIZINE HYDROCHLORIDE
     Indication: NAUSEA
     Dosage: UNK
     Route: 048
     Dates: start: 20170124
  7. MECLIZINE HYDROCHLORIDE. [Suspect]
     Active Substance: MECLIZINE HYDROCHLORIDE
     Indication: HEADACHE

REACTIONS (1)
  - Drug ineffective [Unknown]

NARRATIVE: CASE EVENT DATE: 20170124
